FAERS Safety Report 6302252-X (Version None)
Quarter: 2009Q3

REPORT INFORMATION
  Report Type: 
  Country: None (occurrence: None)
  Receive Date: 20090810
  Receipt Date: 20070627
  Transmission Date: 20100115
  Serious: Yes (Other)
  Sender: FDA-Public Use
  Company Number: US-ASTRAZENECA-2006UW21976

PATIENT
  Age: 43 Year
  Sex: Female
  Weight: 122.9 kg

DRUGS (21)
  1. SEROQUEL [Suspect]
     Indication: SCHIZOPHRENIA
     Route: 048
     Dates: start: 20040817
  2. SEROQUEL [Suspect]
     Route: 048
     Dates: start: 20050418
  3. HALDOL [Concomitant]
     Dates: start: 19940901
  4. RISPERDAL [Concomitant]
     Dosage: 3-6 MG
     Dates: start: 19940101
  5. RISPERDAL [Concomitant]
     Dosage: 1-30 MG
     Route: 048
     Dates: start: 20031117
  6. ALBUTEROL [Concomitant]
     Dosage: INHALE ONE TO TWO PUFFS EVERY 4 HOUR AS NEEDED
     Route: 055
     Dates: start: 20040530
  7. FLOVENT HFA [Concomitant]
     Dosage: INHALE TWO PUFFS TWO TIMES A DAY
     Route: 055
     Dates: start: 20050824
  8. LOTENSIN HCT [Concomitant]
     Indication: HYPERTENSION
     Dosage: 20/25 TAKE 1 TABLET DAILY
     Route: 048
     Dates: start: 20050801
  9. BENAZEPRIL HYDROCHLORIDE [Concomitant]
     Route: 048
     Dates: start: 20040331
  10. AMBIEN [Concomitant]
     Indication: INSOMNIA
     Dosage: 10-20 MG
     Route: 048
     Dates: start: 20040427
  11. LITHIUM CARBONATE [Concomitant]
     Dosage: 300-900 MG
     Route: 048
     Dates: start: 20030818
  12. FLUOXETINE [Concomitant]
     Route: 048
     Dates: start: 20040611
  13. FLUOXETINE [Concomitant]
     Dosage: 20-40 MG
     Route: 048
     Dates: start: 20040611
  14. CLONAZEPAM [Concomitant]
     Dosage: 0.5-1.5 MG
     Route: 048
     Dates: start: 20051128
  15. HYDROXYZINE [Concomitant]
     Indication: ANXIETY
     Dosage: 100-300 MG
     Dates: start: 20050712
  16. HYDROXYZINE PAMOATE [Concomitant]
     Dosage: 100-400 MG
     Route: 048
     Dates: start: 20031007
  17. PREDNISONE [Concomitant]
     Route: 048
     Dates: start: 20051121
  18. HYDROCHLOROTHIAZIDE [Concomitant]
     Route: 048
     Dates: start: 20060110
  19. FOLIC ACID [Concomitant]
     Route: 048
     Dates: start: 20060922
  20. METFORMIN HCL [Concomitant]
     Dosage: 500-1000 MG
     Dates: start: 20060124
  21. TEGRETOL-XR [Concomitant]
     Indication: AFFECTIVE DISORDER
     Dates: start: 20050712

REACTIONS (6)
  - BLOOD GLUCOSE INCREASED [None]
  - DIABETES MELLITUS [None]
  - MALAISE [None]
  - NEUROPATHY PERIPHERAL [None]
  - TYPE 2 DIABETES MELLITUS [None]
  - VOMITING [None]
